FAERS Safety Report 7352209-5 (Version None)
Quarter: 2011Q1

REPORT INFORMATION
  Report Type: 
  Country: None (occurrence: None)
  Receive Date: 20110309
  Receipt Date: 20110309
  Transmission Date: 20110831
  Serious: No
  Sender: FDA-Public Use
  Company Number: None

PATIENT
  Age: 51 Year
  Sex: Female
  Weight: 108.8633 kg

DRUGS (1)
  1. LEVOXYL [Suspect]
     Indication: HYPOTHYROIDISM
     Dosage: 1 1/2 TABLETS QID BEFORE BREAKFA PO
     Route: 048
     Dates: start: 20110105, end: 20110212

REACTIONS (2)
  - TREMOR [None]
  - PALPITATIONS [None]
